FAERS Safety Report 8918536 (Version 1)
Quarter: 2012Q4

REPORT INFORMATION
  Report Type: 
  Country: US (occurrence: US)
  Receive Date: 20121120
  Receipt Date: 20121120
  Transmission Date: 20130627
  Serious: No
  Sender: FDA-Public Use
  Company Number: US-ASTRAZENECA-2012SE18866

PATIENT
  Age: 51 Year
  Sex: Male

DRUGS (23)
  1. NEXIUM [Suspect]
     Route: 048
  2. CYMBALTA [Suspect]
     Route: 065
  3. CYMBALTA [Suspect]
     Route: 065
  4. GLIMEPIRIDE [Suspect]
     Dosage: 1/2 TABS TWICE A DAY
     Route: 048
  5. LISINOPRIL-HYDROCHLOROTHIAZIDE [Suspect]
     Dosage: 20-25 MG TABS, 1 TABLET TWICE A DAY
     Route: 048
  6. METOPROLOL TARTRATE [Suspect]
     Route: 065
  7. CRESTOR [Suspect]
     Route: 048
  8. ACTOPLUS MET XR [Suspect]
     Dosage: 15-1000 MG XR24 H TAB, 1 TABLET TWICE A DAY
     Route: 065
  9. ASPIRIN EC [Suspect]
  10. TYLENOL [Suspect]
     Indication: PAIN
     Dosage: TWO IN AM
  11. CELEBREX [Concomitant]
     Indication: PAIN
  12. VICTOZA [Concomitant]
     Dosage: 18MG/3ML, 6 MG DAILY
  13. LANTUS [Concomitant]
     Dosage: 100 UNIT/ML , 42 UNITS 8 AM DAILY, DISPENSE IN 10 ML VIAL
  14. TRICOR [Concomitant]
  15. PRAVACHOL [Concomitant]
  16. FISH OIL [Concomitant]
     Route: 048
  17. DEPO-TESTOSTERONE [Concomitant]
     Dosage: 200 MG/ML OIL, 200 MG EVERY 2 WEEKS
  18. ALIGN CAPS [Concomitant]
  19. MULTIVITAMINS TABS [Concomitant]
     Route: 048
  20. B-12 [Concomitant]
     Dosage: 1000 MCG CR TABS, TAKE ONE DAILY
     Route: 048
  21. ZOFRAN  ODT [Concomitant]
     Indication: NAUSEA
     Dosage: 1 TABLET EVERY 8 HOURS AS NEEDED
     Route: 048
  22. ALPHA-LIPOIC ACID [Concomitant]
  23. FLU VAX [Concomitant]
     Dates: start: 20111020

REACTIONS (14)
  - Drug hypersensitivity [Unknown]
  - Pain in extremity [Unknown]
  - Essential hypertension [Unknown]
  - Testicular failure [Unknown]
  - Dyslipidaemia [Unknown]
  - Diabetes mellitus inadequate control [Unknown]
  - Diabetic neuropathy [Unknown]
  - Obesity [Unknown]
  - Cholecystitis [Unknown]
  - Depression [Unknown]
  - Urinary incontinence [Unknown]
  - Abdominal pain [Unknown]
  - Dyspnoea [Unknown]
  - Fatigue [Unknown]
